FAERS Safety Report 20407564 (Version 12)
Quarter: 2023Q1

REPORT INFORMATION
  Report Type: Report from Study
  Country: CA (occurrence: CA)
  Receive Date: 20220131
  Receipt Date: 20230125
  Transmission Date: 20230418
  Serious: Yes (Other)
  Sender: FDA-Public Use
  Company Number: CA-JNJFOC-20211112729

PATIENT
  Age: 68 Year
  Sex: Female
  Weight: 67.2 kg

DRUGS (2)
  1. REMICADE [Suspect]
     Active Substance: INFLIXIMAB
     Indication: Rheumatoid arthritis
     Dosage: BATCH/LOT NO: MAM77011
     Route: 041
  2. PROLIA [Suspect]
     Active Substance: DENOSUMAB
     Indication: Product used for unknown indication
     Route: 065

REACTIONS (23)
  - Pneumonia [Recovering/Resolving]
  - Pneumonia fungal [Recovering/Resolving]
  - Pneumonia pseudomonal [Unknown]
  - Cataract [Recovered/Resolved]
  - Blood iron decreased [Unknown]
  - Oral candidiasis [Unknown]
  - Burning sensation [Recovering/Resolving]
  - COVID-19 [Unknown]
  - Vascular access complication [Not Recovered/Not Resolved]
  - Skin laceration [Recovering/Resolving]
  - Accident at home [Unknown]
  - Device issue [Unknown]
  - Excessive granulation tissue [Unknown]
  - Wound [Recovered/Resolved]
  - Asthenia [Recovering/Resolving]
  - Decreased appetite [Recovered/Resolved]
  - Weight decreased [Recovering/Resolving]
  - Dyspnoea [Not Recovered/Not Resolved]
  - Chest discomfort [Unknown]
  - Pain in extremity [Unknown]
  - Pulmonary mass [Recovering/Resolving]
  - Dysphagia [Recovering/Resolving]
  - Oesophageal pain [Unknown]

NARRATIVE: CASE EVENT DATE: 20211104
